FAERS Safety Report 9124049 (Version 1)
Quarter: 2013Q1

REPORT INFORMATION
  Report Type: Spontaneous
  Country: US (occurrence: US)
  Receive Date: 20130227
  Receipt Date: 20130227
  Transmission Date: 20140127
  Serious: Yes (Other)
  Sender: FDA-Public Use
  Company Number: US-WATSON-2013-03116

PATIENT
  Age: 55 Year
  Sex: Female

DRUGS (11)
  1. MORPHINE SULFATE (UNKNOWN) [Suspect]
     Indication: BACK PAIN
     Dosage: 50 MG, Q6H
     Route: 065
  2. OXYCODONE HYDROCHLORIDE/APAP [Suspect]
     Indication: BACK PAIN
     Dosage: 1 DF, Q8H
     Route: 065
  3. CYCLOBENZAPRINE HYDROCHLORIDE [Suspect]
     Indication: BACK PAIN
     Dosage: 10 MG, Q8H
     Route: 065
  4. LEVOTHYROXINE SODIUM [Suspect]
     Indication: HYPOTHYROIDISM
     Dosage: 100-112 ?G (MICROGRAMS) DAILY
     Route: 065
  5. LEVOTHYROXINE SODIUM [Suspect]
     Indication: THYROID DISORDER
  6. SERTRALINE [Concomitant]
     Indication: PRODUCT USED FOR UNKNOWN INDICATION
  7. METOPROLOL [Concomitant]
     Indication: PRODUCT USED FOR UNKNOWN INDICATION
     Dosage: 75 MG, BID
     Route: 065
  8. LORATADINE [Concomitant]
     Indication: PRODUCT USED FOR UNKNOWN INDICATION
     Dosage: 10 MG, DAILY
     Route: 065
  9. FLUTICASONE [Concomitant]
     Indication: PRODUCT USED FOR UNKNOWN INDICATION
     Dosage: 2 DF, BID
  10. FLUTICASONE [Concomitant]
     Dosage: 2 DF, DAILY
     Route: 065
  11. ALPRAZOLAM [Concomitant]
     Indication: PRODUCT USED FOR UNKNOWN INDICATION
     Dosage: 0.5 MG, Q8H
     Route: 065

REACTIONS (6)
  - Pain [Unknown]
  - Drug effect decreased [Unknown]
  - Blood thyroid stimulating hormone increased [Unknown]
  - Sedation [Unknown]
  - Drug ineffective [Unknown]
  - Drug interaction [Unknown]
